FAERS Safety Report 8428032-7 (Version None)
Quarter: 2012Q2

REPORT INFORMATION
  Report Type: 
  Country: None (occurrence: None)
  Receive Date: 20120611
  Receipt Date: 20120606
  Transmission Date: 20120825
  Serious: Yes (Hospitalization, Other)
  Sender: FDA-Public Use
  Company Number: US-ASTRAZENECA-2012SE29536

PATIENT
  Age: 43 Year
  Sex: Male
  Weight: 108.9 kg

DRUGS (57)
  1. SEROQUEL [Suspect]
     Route: 048
     Dates: start: 20120501
  2. SEROQUEL [Suspect]
     Route: 048
     Dates: start: 20120501
  3. SEROQUEL [Suspect]
     Route: 048
     Dates: start: 20120501
  4. SEROQUEL [Suspect]
     Route: 048
     Dates: start: 20120501
  5. SEROQUEL [Suspect]
     Route: 048
     Dates: start: 20070118
  6. SEROQUEL [Suspect]
     Route: 048
     Dates: start: 20070118
  7. SEROQUEL [Suspect]
     Route: 048
  8. SEROQUEL [Suspect]
     Dosage: 25 MG 1 TO 2, AT BED TIME
     Route: 048
  9. SEROQUEL [Suspect]
     Dosage: 25 MG 1 TO 2, AT BED TIME
     Route: 048
  10. TIZANIDINE HYDROCHLORIDE [Concomitant]
  11. ALLOPURINOL [Concomitant]
  12. LAMICTAL [Concomitant]
     Route: 048
  13. CYCLOBENZAPRINE [Concomitant]
  14. LORAZEPAM [Concomitant]
  15. SEROQUEL [Suspect]
     Indication: NERVOUS SYSTEM DISORDER
     Route: 048
     Dates: start: 20110201
  16. SEROQUEL [Suspect]
     Indication: DEPRESSION
     Route: 048
     Dates: start: 20110201
  17. SEROQUEL [Suspect]
     Route: 048
     Dates: start: 20120501
  18. SEROQUEL [Suspect]
     Route: 048
     Dates: start: 20070118
  19. SEROQUEL [Suspect]
     Dosage: 25 MG 1 TO 2, AT BED TIME
     Route: 048
  20. SEROQUEL [Suspect]
     Dosage: 50 MG IN THE MORNING, 50 MG AT LUNCH AND 200 MG AT NIGHT
     Route: 048
  21. LAMICTAL [Concomitant]
  22. WELLBUTRIN [Concomitant]
     Route: 048
  23. LOVASTATIN [Concomitant]
  24. ASPIRIN [Concomitant]
  25. MULTI-VITAMINS [Concomitant]
     Route: 048
  26. VITAMIN B COMPLEX CAP [Concomitant]
     Route: 048
  27. SEROQUEL [Suspect]
     Dosage: 50 MG IN THE MORNING, 50 MG AT LUNCH AND 200 MG AT NIGHT
     Route: 048
  28. SEROQUEL [Suspect]
     Dosage: 50 MG IN THE MORNING, 50 MG AT LUNCH AND 200 MG AT NIGHT
     Route: 048
  29. SEROQUEL [Suspect]
     Dosage: 50 MG IN THE MORNING, 50 MG AT LUNCH AND 200 MG AT NIGHT
     Route: 048
  30. ACETAMINOPHEN [Concomitant]
     Route: 048
  31. LORAZEPAM [Concomitant]
  32. OMEPRAZOLE [Concomitant]
  33. SEROQUEL [Suspect]
     Route: 048
     Dates: start: 20120501
  34. SEROQUEL [Suspect]
     Route: 048
     Dates: start: 20070118
  35. ACETAMINOPHEN [Concomitant]
     Route: 048
  36. ZOFRAN [Concomitant]
     Indication: NAUSEA
     Dosage: 4.6MG Q8 HOURS, PRN
     Route: 042
  37. ALLOPURINOL [Concomitant]
     Route: 048
  38. OMEPRAZOLE [Concomitant]
  39. CALCIUM [Concomitant]
     Route: 048
  40. SEROQUEL [Suspect]
     Route: 048
     Dates: start: 20120501
  41. SEROQUEL [Suspect]
     Route: 048
  42. AMBIEN [Concomitant]
  43. PROPRANOLOL [Concomitant]
     Route: 048
  44. MAGNESIUM [Concomitant]
     Route: 048
  45. SEROQUEL [Suspect]
     Route: 048
  46. SEROQUEL [Suspect]
     Dosage: 25 MG 1 TO 2, AT BED TIME
     Route: 048
  47. WELLBUTRIN [Concomitant]
     Indication: DEPRESSION
     Route: 048
     Dates: start: 20070118
  48. FIORICET [Concomitant]
     Indication: PAIN
     Dosage: Q 4 HOURS, PRN
     Route: 048
  49. SEROQUEL [Suspect]
     Route: 048
     Dates: start: 20120501
  50. SEROQUEL [Suspect]
     Route: 048
  51. PREDNISONE TAB [Concomitant]
  52. VITAMIN D [Concomitant]
     Route: 048
  53. FISH OIL [Concomitant]
     Route: 048
  54. SEROQUEL [Suspect]
     Indication: BIPOLAR DISORDER
     Route: 048
     Dates: start: 20110201
  55. SEROQUEL [Suspect]
     Indication: MOOD SWINGS
     Route: 048
     Dates: start: 20110201
  56. NEXIUM [Concomitant]
     Route: 042
  57. ACYCLOVIR [Concomitant]
     Route: 048

REACTIONS (22)
  - BRAIN COMPRESSION [None]
  - EYE PAIN [None]
  - OFF LABEL USE [None]
  - ALCOHOL POISONING [None]
  - BRAIN MIDLINE SHIFT [None]
  - BRAIN INJURY [None]
  - SKULL FRACTURED BASE [None]
  - HEADACHE [None]
  - SLEEP APNOEA SYNDROME [None]
  - SUBDURAL HAEMATOMA [None]
  - COGNITIVE DISORDER [None]
  - BRAIN CONTUSION [None]
  - AGITATION [None]
  - DRUG DOSE OMISSION [None]
  - HERPES ZOSTER OPHTHALMIC [None]
  - FALL [None]
  - SUBARACHNOID HAEMORRHAGE [None]
  - SINUSITIS [None]
  - INSOMNIA [None]
  - THERAPEUTIC RESPONSE UNEXPECTED [None]
  - SKULL FRACTURE [None]
  - ALCOHOL WITHDRAWAL SYNDROME [None]
